FAERS Safety Report 5485673-7 (Version None)
Quarter: 2007Q4

REPORT INFORMATION
  Report Type: 
  Country: None (occurrence: None)
  Receive Date: 20071011
  Receipt Date: 20071011
  Transmission Date: 20080405
  Serious: Yes (Life-Threatening, Hospitalization, Other)
  Sender: FDA-Public Use
  Company Number: None

PATIENT
  Age: 60 Year
  Sex: Male
  Weight: 77.1115 kg

DRUGS (1)
  1. GADOLITE [Suspect]
     Indication: DIAGNOSTIC PROCEDURE
     Dosage: IV
     Route: 042
     Dates: start: 20070918, end: 20070919

REACTIONS (12)
  - ANGINA UNSTABLE [None]
  - ASTHENIA [None]
  - CEREBROVASCULAR ACCIDENT [None]
  - ERYTHEMA [None]
  - HEADACHE [None]
  - HYPERSENSITIVITY [None]
  - HYPERTENSION [None]
  - MEMORY IMPAIRMENT [None]
  - NERVOUS SYSTEM DISORDER [None]
  - PRURITUS [None]
  - SWELLING [None]
  - URTICARIA [None]
